FAERS Safety Report 9361599 (Version 2)
Quarter: 2013Q3

REPORT INFORMATION
  Report Type: Spontaneous
  Country: US (occurrence: US)
  Receive Date: 20130621
  Receipt Date: 20130703
  Transmission Date: 20140515
  Serious: Yes (Hospitalization)
  Sender: FDA-Public Use
  Company Number: US-GILEAD-2013-0077339

PATIENT
  Age: 56 Year
  Sex: Female

DRUGS (24)
  1. LETAIRIS [Suspect]
     Indication: PULMONARY ARTERIAL HYPERTENSION
     Dosage: 10 MG, UNK
     Dates: start: 20071119
  2. LETAIRIS [Suspect]
     Dosage: 10 MG, QD
     Dates: start: 20080419
  3. DILTIAZEM [Concomitant]
  4. ENALAPRIL [Concomitant]
  5. ISOSORBIDE MONONITRATE [Concomitant]
  6. LASIX                              /00032601/ [Concomitant]
  7. KCL [Concomitant]
  8. RANEXA [Concomitant]
  9. FLEXERIL                           /00428402/ [Concomitant]
  10. SERTRALINE [Concomitant]
  11. PULMICORT [Concomitant]
  12. SYNTHROID [Concomitant]
  13. COLACE [Concomitant]
  14. SERRA [Concomitant]
  15. SYMBICORT [Concomitant]
  16. FENTANYL [Concomitant]
  17. MORPHINE SULFATE [Concomitant]
  18. DILAUDID [Concomitant]
  19. TEMAZEPAM [Concomitant]
  20. LORAZEPAM [Concomitant]
  21. XOPENEX [Concomitant]
  22. AMOXICILLIN [Concomitant]
  23. PROTONIX [Concomitant]
  24. SIMVASTATIN [Concomitant]

REACTIONS (4)
  - Cardiac failure congestive [Recovered/Resolved]
  - Chest pain [Unknown]
  - Dyspnoea [Unknown]
  - Fluid overload [Unknown]
